FAERS Safety Report 4300745-8 (Version None)
Quarter: 2004Q1

REPORT INFORMATION
  Report Type: 
  Country: None (occurrence: None)
  Receive Date: 20040218
  Receipt Date: 20040129
  Transmission Date: 20041129
  Serious: Yes (Hospitalization, Other)
  Sender: FDA-Public Use
  Company Number: USA031254505

PATIENT
  Age: 60 Year
  Sex: Female

DRUGS (1)
  1. FORTEO [Suspect]
     Indication: OSTEOPOROSIS
     Dosage: 20 UG/DAY
     Dates: start: 20030101

REACTIONS (6)
  - CARDIAC FAILURE CONGESTIVE [None]
  - CARDIAC VALVE REPLACEMENT COMPLICATION [None]
  - ENDOCARDITIS BACTERIAL [None]
  - PHARMACEUTICAL PRODUCT COMPLAINT [None]
  - STAPHYLOCOCCAL INFECTION [None]
  - SUBACUTE ENDOCARDITIS [None]
